FAERS Safety Report 9258982 (Version 1)
Quarter: 2013Q2

REPORT INFORMATION
  Report Type: Report from Study
  Country: JP (occurrence: JP)
  Receive Date: 20130426
  Receipt Date: 20130426
  Transmission Date: 20140414
  Serious: Yes (Hospitalization)
  Sender: FDA-Public Use
  Company Number: JP-NAPPMUNDI-GBR-2013-0013765

PATIENT
  Age: 88 Year
  Sex: Female
  Weight: 48 kg

DRUGS (9)
  1. BTDS PATCH [Suspect]
     Indication: BACK PAIN
     Dosage: 5 MCG, Q1H
     Route: 062
     Dates: start: 20120814, end: 20120824
  2. BTDS PATCH [Suspect]
     Dosage: 10 MCG, Q1H
     Route: 062
     Dates: start: 20120802, end: 20120814
  3. BTDS PATCH [Suspect]
     Dosage: 5 MCG, Q1H
     Route: 062
     Dates: start: 20120726, end: 20120802
  4. URINORM [Concomitant]
     Indication: HYPERURICAEMIA
     Dosage: 25 MG, DAILY
     Route: 048
     Dates: start: 20081127
  5. OMEPRAL                            /00661201/ [Concomitant]
     Indication: GASTROOESOPHAGEAL REFLUX DISEASE
     Dosage: 10 MG, DAILY
     Route: 048
     Dates: start: 20081127
  6. NORVASC [Concomitant]
     Indication: HYPERTENSION
     Dosage: 2.5 MG, DAILY
     Route: 048
     Dates: start: 20081127
  7. ALLEGRA [Concomitant]
     Indication: RHINITIS ALLERGIC
     Dosage: 120 MG, WEEKLY
     Route: 048
     Dates: start: 20081127
  8. RECALBON [Concomitant]
     Indication: OSTEOPOROSIS
     Dosage: 50 MG, MONTHLY
     Route: 048
     Dates: start: 20111124
  9. NAUZELIN [Concomitant]
     Indication: PROPHYLAXIS
     Dosage: 30 MG, DAILY
     Route: 048
     Dates: start: 20120726, end: 20120824

REACTIONS (2)
  - Biliary colic [Recovered/Resolved]
  - Nausea [Recovered/Resolved]
